FAERS Safety Report 8138403-4 (Version None)
Quarter: 2012Q1

REPORT INFORMATION
  Report Type: 
  Country: None (occurrence: None)
  Receive Date: 20120215
  Receipt Date: 20111208
  Transmission Date: 20120608
  Serious: Yes (Other)
  Sender: FDA-Public Use
  Company Number: NL-ROCHE-1031834

PATIENT

DRUGS (4)
  1. CARBOPLATIN [Suspect]
     Indication: BREAST CANCER
  2. HERCEPTIN [Suspect]
     Indication: BREAST CANCER
     Dosage: STARTED WITH LOADING DOSE IN CYCLE 7
  3. HERCEPTIN [Suspect]
     Dosage: GIVEN AT 8, 15, 16, 23, AND 24TH CYCLE.
  4. PACLITAXEL [Suspect]
     Indication: BREAST CANCER

REACTIONS (2)
  - NEUTROPENIA [None]
  - THROMBOCYTOPENIA [None]
